FAERS Safety Report 15919099 (Version 1)
Quarter: 2019Q1

REPORT INFORMATION
  Report Type: Spontaneous
  Country: US (occurrence: US)
  Receive Date: 20190205
  Receipt Date: 20190205
  Transmission Date: 20190417
  Serious: No
  Sender: FDA-Public Use
  Company Number: PHEH2019US004712

PATIENT
  Sex: Female
  Weight: 58.7 kg

DRUGS (6)
  1. CITRACAL [Concomitant]
     Active Substance: CALCIUM CITRATE
     Indication: GENERAL PHYSICAL HEALTH DETERIORATION
     Dosage: 1 CAPLET MONDAY TO FRIDAY
     Route: 048
  2. CENTRUM [Concomitant]
     Active Substance: VITAMINS
     Indication: PRODUCT USED FOR UNKNOWN INDICATION
     Dosage: 1 CAPLET PER DAY MONDAY-FRIDAY
     Route: 048
  3. VITAMIN D [Concomitant]
     Active Substance: CHOLECALCIFEROL
     Indication: GENERAL PHYSICAL HEALTH DETERIORATION
     Dosage: 1 TABLET MONDAY-FRIDAY BY MOUTH
     Route: 048
  4. LETROZOLE. [Suspect]
     Active Substance: LETROZOLE
     Indication: BREAST CANCER METASTATIC
     Dosage: 2.5 MG, QD
     Route: 048
     Dates: start: 201805
  5. KISQALI [Suspect]
     Active Substance: RIBOCICLIB
     Indication: PRODUCT USED FOR UNKNOWN INDICATION
     Dosage: 600 MG, UNK
     Route: 065
  6. IBRANCE [Suspect]
     Active Substance: PALBOCICLIB
     Indication: BREAST CANCER METASTATIC
     Dosage: 125 MG, QD (1 CAPSULE FOR 21 DAYS AND THEN 9 TO 10 DAYS OFF)
     Route: 065
     Dates: start: 201807

REACTIONS (2)
  - Onychomycosis [Unknown]
  - Abdominal discomfort [Unknown]
